FAERS Safety Report 6052009-2 (Version None)
Quarter: 2009Q1

REPORT INFORMATION
  Report Type: 
  Country: None (occurrence: None)
  Receive Date: 20090122
  Receipt Date: 20090122
  Transmission Date: 20090719
  Serious: No
  Sender: FDA-Public Use
  Company Number: None

PATIENT
  Age: 58 Year
  Sex: Female
  Weight: 77.1115 kg

DRUGS (1)
  1. CHANTIX [Suspect]
     Indication: SMOKING CESSATION THERAPY
     Dosage: 1 TABLET DAILY PO
     Route: 048
     Dates: start: 20080915, end: 20081006

REACTIONS (8)
  - ANXIETY [None]
  - DEPRESSION [None]
  - DISORIENTATION [None]
  - HYPOPHAGIA [None]
  - MALAISE [None]
  - NAUSEA [None]
  - PALPITATIONS [None]
  - VISION BLURRED [None]
